FAERS Safety Report 5552999-8 (Version None)
Quarter: 2007Q4

REPORT INFORMATION
  Report Type: 
  Country: None (occurrence: None)
  Receive Date: 20071212
  Receipt Date: 20070703
  Transmission Date: 20080405
  Serious: No
  Sender: FDA-Public Use
  Company Number: US-AMGEN-KDL229853

PATIENT
  Sex: Female
  Weight: 89 kg

DRUGS (5)
  1. ENBREL [Suspect]
     Indication: RHEUMATOID ARTHRITIS
     Route: 058
     Dates: start: 20070401
  2. METHOTREXATE [Suspect]
     Route: 048
     Dates: start: 20020101
  3. PLAQUENIL [Concomitant]
     Route: 048
     Dates: start: 20061101
  4. FOLIC ACID [Concomitant]
  5. CELEBREX [Concomitant]

REACTIONS (3)
  - HYPERSENSITIVITY [None]
  - RHINITIS ALLERGIC [None]
  - SINUSITIS [None]
